FAERS Safety Report 5125270-6 (Version None)
Quarter: 2006Q4

REPORT INFORMATION
  Report Type: 
  Country: None (occurrence: None)
  Receive Date: 20061006
  Receipt Date: 20060928
  Transmission Date: 20070319
  Serious: Yes (Other)
  Sender: FDA-Public Use
  Company Number: 2006117093

PATIENT
  Age: 44 Year
  Sex: Female
  Weight: 61.2356 kg

DRUGS (1)
  1. LISTERINE VANILLA MINT (MENTHOL, METHYL SALICYLATE, EUCALYPTOL, THYMOL [Suspect]
     Indication: BREATH ODOUR
     Dosage: A SMALL AMOUNT AFTER LUNCH, ORAL
     Route: 048
     Dates: start: 20060901

REACTIONS (1)
  - ABNORMAL BEHAVIOUR [None]
